FAERS Safety Report 13369941 (Version 1)
Quarter: 2017Q1

REPORT INFORMATION
  Report Type: Spontaneous
  Country: US (occurrence: US)
  Receive Date: 20170324
  Receipt Date: 20170324
  Transmission Date: 20170429
  Serious: No
  Sender: FDA-Public Use
  Company Number: US-ROCHE-1298101

PATIENT
  Age: 60 Year
  Sex: Female
  Weight: 67.3 kg

DRUGS (21)
  1. XOLAIR [Suspect]
     Active Substance: OMALIZUMAB
     Route: 058
  2. TRETINOIN. [Concomitant]
     Active Substance: TRETINOIN
     Route: 065
     Dates: start: 20130401
  3. PRAVASTATIN. [Concomitant]
     Active Substance: PRAVASTATIN
     Route: 065
  4. PRAMOSONE LOTION [Concomitant]
     Dosage: 1-1%
     Route: 065
     Dates: start: 20130401
  5. XOLAIR [Suspect]
     Active Substance: OMALIZUMAB
     Indication: RHINITIS ALLERGIC
     Route: 058
     Dates: start: 20130823
  6. DOXEPIN [Concomitant]
     Active Substance: DOXEPIN
     Dosage: 2 AT BED TIME
     Route: 048
     Dates: start: 20091019
  7. ADVAIR DISKUS [Concomitant]
     Active Substance: FLUTICASONE PROPIONATE\SALMETEROL XINAFOATE
     Dosage: 250/50 MCG 1 PUFF?USE 1 INHALATION EVERY 12 HOURS AS RINSE MOUTH AFTER USE
     Route: 055
     Dates: start: 20120305
  8. XOLAIR [Suspect]
     Active Substance: OMALIZUMAB
     Indication: ASTHMA
     Route: 058
     Dates: start: 201307
  9. AMMONIUM LACTATE. [Concomitant]
     Active Substance: AMMONIUM LACTATE
     Dosage: APPLY AND RUB IN A THIN FILM TO AFFECTED AREAS TWICE DAILY
     Route: 065
     Dates: start: 20130401
  10. EPIPEN [Concomitant]
     Active Substance: EPINEPHRINE
     Dosage: 2 PAK 0.3 MG/0.3 ML
     Route: 065
     Dates: start: 20130823
  11. HCTZ [Concomitant]
     Active Substance: HYDROCHLOROTHIAZIDE
  12. COPPER [Concomitant]
     Active Substance: COPPER
     Route: 065
  13. PROAIR HFA [Concomitant]
     Active Substance: ALBUTEROL SULFATE
     Route: 055
     Dates: start: 20120305
  14. LOSARTAN POTASSIUM. [Concomitant]
     Active Substance: LOSARTAN POTASSIUM
     Indication: BLOOD PRESSURE MEASUREMENT
     Route: 048
     Dates: start: 20111007
  15. ALPRAZOLAM. [Concomitant]
     Active Substance: ALPRAZOLAM
     Route: 048
     Dates: start: 20110816
  16. KLONOPIN [Suspect]
     Active Substance: CLONAZEPAM
     Indication: PRODUCT USED FOR UNKNOWN INDICATION
     Dosage: 1 TO 2 TABLETS AT BEDTIME
     Route: 048
     Dates: start: 20090514
  17. VITAMIN E [Concomitant]
     Active Substance: .ALPHA.-TOCOPHEROL
     Route: 065
  18. PRAVACHOL [Concomitant]
     Active Substance: PRAVASTATIN SODIUM
     Route: 065
  19. NEXIUM [Concomitant]
     Active Substance: ESOMEPRAZOLE MAGNESIUM
     Indication: GASTROOESOPHAGEAL REFLUX DISEASE
     Route: 048
     Dates: start: 20110816
  20. GARLIC. [Concomitant]
     Active Substance: GARLIC
  21. PRAVASTATIN SODIUM. [Concomitant]
     Active Substance: PRAVASTATIN SODIUM
     Indication: BLOOD CHOLESTEROL
     Route: 048
     Dates: start: 20110817

REACTIONS (11)
  - Pain [Unknown]
  - Sciatica [Unknown]
  - Arthralgia [Recovered/Resolved]
  - Headache [Recovered/Resolved]
  - Headache [Recovered/Resolved]
  - Intervertebral disc protrusion [Unknown]
  - Osteopenia [Unknown]
  - Arthralgia [Recovered/Resolved]
  - Osteoporosis [Unknown]
  - Pruritus generalised [Unknown]
  - Scar [Unknown]

NARRATIVE: CASE EVENT DATE: 201307
